FAERS Safety Report 15314824 (Version 1)
Quarter: 2018Q4

REPORT INFORMATION
  Report Type: Spontaneous
  Country: GB (occurrence: GB)
  Receive Date: 20180824
  Receipt Date: 20180824
  Transmission Date: 20190204
  Serious: Yes (Other)
  Sender: FDA-Public Use
  Company Number: GB-009507513-1808GBR008478

PATIENT
  Sex: Female

DRUGS (3)
  1. AVIBACTAM SODIUM (+) CEFTAZIDIME [Suspect]
     Active Substance: AVIBACTAM SODIUM\CEFTAZIDIME
  2. COLISTIN [Suspect]
     Active Substance: COLISTIN
     Dosage: NEBULISED
  3. ZERBAXA [Suspect]
     Active Substance: CEFTOLOZANE SULFATE\TAZOBACTAM SODIUM
     Dosage: 1.5 MG, 3 TIMES A DAY (TDS)

REACTIONS (3)
  - Critical illness [Unknown]
  - Renal tubular acidosis [Unknown]
  - Minimum inhibitory concentration increased [Unknown]
